FAERS Safety Report 12699629 (Version 1)
Quarter: 2016Q3

REPORT INFORMATION
  Report Type: Spontaneous
  Country: FR (occurrence: FR)
  Receive Date: 20160830
  Receipt Date: 20160830
  Transmission Date: 20161109
  Serious: Yes (Hospitalization)
  Sender: FDA-Public Use
  Company Number: FR-B. BRAUN MEDICAL INC.-1056887

PATIENT
  Age: 82 Year
  Sex: Male

DRUGS (12)
  1. CEFTRIAXONE. [Suspect]
     Active Substance: CEFTRIAXONE
     Route: 042
     Dates: start: 20160108, end: 20160108
  2. PARACETAMOL [Concomitant]
     Active Substance: ACETAMINOPHEN
  3. PANTOPRAZOLE [Concomitant]
     Active Substance: PANTOPRAZOLE SODIUM
  4. PROPOFOL. [Suspect]
     Active Substance: PROPOFOL
     Route: 042
     Dates: start: 20160108, end: 20160108
  5. CISATRACURIUM BESILATE [Suspect]
     Active Substance: CISATRACURIUM BESYLATE
     Route: 042
     Dates: start: 20160108, end: 20160108
  6. ETOMIDATE. [Suspect]
     Active Substance: ETOMIDATE
     Route: 042
     Dates: start: 20160108, end: 20160108
  7. SUFENTANIL [Suspect]
     Active Substance: SUFENTANIL
     Route: 042
     Dates: start: 20160108, end: 20160108
  8. METRONIDAZOLE. [Suspect]
     Active Substance: METRONIDAZOLE
     Route: 042
     Dates: start: 20160108
  9. CIPROFLOXACIN. [Concomitant]
     Active Substance: CIPROFLOXACIN
  10. ACETYLSALICYLATE LYSINE [Concomitant]
     Active Substance: ASPIRIN DL-LYSINE
  11. RAMIPRIL. [Concomitant]
     Active Substance: RAMIPRIL
  12. TAMSULOSIN [Concomitant]
     Active Substance: TAMSULOSIN

REACTIONS (4)
  - Hypotension [None]
  - Rash [None]
  - Anaphylactic shock [None]
  - Bronchospasm [None]
